FAERS Safety Report 7249513-8 (Version None)
Quarter: 2011Q1

REPORT INFORMATION
  Report Type: 
  Country: None (occurrence: None)
  Receive Date: 20110128
  Receipt Date: 20110120
  Transmission Date: 20110831
  Serious: Yes (Other)
  Sender: FDA-Public Use
  Company Number: PHHY2011US05135

PATIENT
  Sex: Male

DRUGS (2)
  1. ANTIHYPERTENSIVE DRUGS [Concomitant]
     Dosage: UNK
  2. GILENYA [Suspect]
     Indication: MULTIPLE SCLEROSIS
     Dosage: 0.5 MG, DAILY
     Route: 048
     Dates: start: 20110113

REACTIONS (5)
  - SCIATICA [None]
  - MULTIPLE SCLEROSIS RELAPSE [None]
  - HYPOAESTHESIA [None]
  - PAIN IN EXTREMITY [None]
  - MUSCULAR WEAKNESS [None]
